FAERS Safety Report 4782782-2 (Version None)
Quarter: 2005Q3

REPORT INFORMATION
  Report Type: 
  Country: None (occurrence: None)
  Receive Date: 20050914
  Receipt Date: 20050207
  Transmission Date: 20060218
  Serious: Yes (Hospitalization)
  Sender: FDA-Public Use
  Company Number: 163-20785-04050446

PATIENT
  Age: 61 Year
  Sex: Male

DRUGS (2)
  1. THALOMID [Suspect]
     Indication: METASTATIC RENAL CELL CARCINOMA
     Dosage: 100 MG, QD, ORAL; 100 - 200 MG, QHS, ORAL
     Route: 048
     Dates: start: 20040505, end: 20040513
  2. THALOMID [Suspect]
     Indication: METASTATIC RENAL CELL CARCINOMA
     Dosage: 100 MG, QD, ORAL; 100 - 200 MG, QHS, ORAL
     Route: 048
     Dates: start: 20040517

REACTIONS (4)
  - ATRIAL FIBRILLATION [None]
  - CONDITION AGGRAVATED [None]
  - SICK SINUS SYNDROME [None]
  - VENTRICULAR TACHYCARDIA [None]
